FAERS Safety Report 7015484-2 (Version None)
Quarter: 2010Q3

REPORT INFORMATION
  Report Type: 
  Country: None (occurrence: None)
  Receive Date: 20100927
  Receipt Date: 20100922
  Transmission Date: 20110219
  Serious: Yes (Hospitalization)
  Sender: FDA-Public Use
  Company Number: ES-BAYER-201039939GPV

PATIENT
  Age: 71 Year
  Sex: Male

DRUGS (4)
  1. NEXAVAR [Suspect]
     Indication: HEPATIC NEOPLASM MALIGNANT
     Route: 048
     Dates: start: 20100703, end: 20100825
  2. PANTOPRAZOLE SODIUM [Concomitant]
     Dates: start: 20100101
  3. PROPRANOLOL [Concomitant]
     Dates: start: 20060101
  4. SPIRONOLACTONE [Concomitant]
     Dates: start: 20100101

REACTIONS (2)
  - HEPATIC ENCEPHALOPATHY [None]
  - PNEUMOTHORAX [None]
